FAERS Safety Report 17566071 (Version 1)
Quarter: 2020Q1

REPORT INFORMATION
  Report Type: Spontaneous
  Country: IT (occurrence: IT)
  Receive Date: 20200320
  Receipt Date: 20200320
  Transmission Date: 20200409
  Serious: Yes (Hospitalization, Other)
  Sender: FDA-Public Use
  Company Number: NVSC2020IT080264

PATIENT
  Age: 16 Year
  Sex: Male

DRUGS (1)
  1. MYCOPHENOLATE MOFETIL. [Suspect]
     Active Substance: MYCOPHENOLATE MOFETIL
     Indication: ACUTE GRAFT VERSUS HOST DISEASE IN LIVER
     Dosage: UNK
     Route: 065

REACTIONS (5)
  - Arthralgia [Unknown]
  - Product use in unapproved indication [Unknown]
  - Myositis [Unknown]
  - Aspergillus infection [Unknown]
  - Pyrexia [Unknown]
